FAERS Safety Report 9015335 (Version 3)
Quarter: 2014Q4

REPORT INFORMATION
  Report Type: Spontaneous
  Country: US (occurrence: US)
  Receive Date: 20130116
  Receipt Date: 20141226
  Transmission Date: 20150529
  Serious: Yes (Life-Threatening, Hospitalization, Disabling)
  Sender: FDA-Public Use
  Company Number: US-BAYER-2013-004335

PATIENT
  Age: 24 Year
  Sex: Female

DRUGS (13)
  1. OCELLA [Suspect]
     Active Substance: DROSPIRENONE\ETHINYL ESTRADIOL
     Dosage: UNK
  2. YAZ [Suspect]
     Active Substance: DROSPIRENONE\ETHINYL ESTRADIOL
  3. IBUPROFEN. [Concomitant]
     Active Substance: IBUPROFEN
     Dosage: 600 MG, UNK
  4. NORCO [Concomitant]
     Active Substance: ACETAMINOPHEN\HYDROCODONE BITARTRATE
     Dosage: ? TAB TWO TIMES PER DAY
  5. GIANVI [Suspect]
     Active Substance: DROSPIRENONE\ETHINYL ESTRADIOL
  6. PRILOSEC [Concomitant]
     Active Substance: OMEPRAZOLE MAGNESIUM
  7. ZARAH [Suspect]
     Active Substance: DROSPIRENONE\ETHINYL ESTRADIOL
  8. AMOXICILLIN. [Concomitant]
     Active Substance: AMOXICILLIN
     Indication: OTITIS MEDIA
     Dosage: 500 MG, UNK
  9. OMEPRAZOLE. [Concomitant]
     Active Substance: OMEPRAZOLE
     Dosage: 20 MG, UNK
  10. LEVOTHROID [Concomitant]
     Active Substance: LEVOTHYROXINE SODIUM
     Indication: HYPOTHYROIDISM
     Dosage: UNK
  11. BEYAZ [Suspect]
     Active Substance: DROSPIRENONE\ETHINYL ESTRADIOL\LEVOMEFOLATE CALCIUM
  12. YASMIN [Suspect]
     Active Substance: DROSPIRENONE\ETHINYL ESTRADIOL
     Dosage: UNK
  13. SAFYRAL [Suspect]
     Active Substance: DROSPIRENONE\ETHINYL ESTRADIOL\LEVOMEFOLATE CALCIUM

REACTIONS (10)
  - General physical health deterioration [None]
  - Portal vein thrombosis [None]
  - Anxiety [None]
  - Anhedonia [None]
  - Pain [None]
  - Injury [None]
  - Mesenteric vein thrombosis [None]
  - Deep vein thrombosis [None]
  - Emotional distress [None]
  - Splenic vein thrombosis [None]

NARRATIVE: CASE EVENT DATE: 201206
